FAERS Safety Report 6905640-3 (Version None)
Quarter: 2010Q3

REPORT INFORMATION
  Report Type: 
  Country: None (occurrence: None)
  Receive Date: 20100804
  Receipt Date: 20100727
  Transmission Date: 20110219
  Serious: Yes (Other)
  Sender: FDA-Public Use
  Company Number: US-PFIZER INC-2008003970

PATIENT
  Sex: Male
  Weight: 86.2 kg

DRUGS (6)
  1. DILANTIN [Interacting]
     Indication: CONVULSION
     Dosage: UNK
     Dates: start: 19900101
  2. DILANTIN [Interacting]
     Dosage: 50 MG, 2X/DAY
     Dates: start: 20000101
  3. PHENYTOIN SODIUM [Suspect]
     Indication: EPILEPSY
     Dosage: 100 MG
     Dates: start: 20030101
  4. LEVAQUIN [Interacting]
     Indication: SINUSITIS
     Dosage: UNK
     Route: 048
     Dates: start: 20060701, end: 20060101
  5. CLARITIN [Concomitant]
     Indication: HYPERSENSITIVITY
     Dosage: 10 MG, DAILY
     Route: 048
  6. PRILOSEC [Concomitant]
     Indication: GASTROOESOPHAGEAL REFLUX DISEASE
     Route: 048

REACTIONS (5)
  - CONVULSION [None]
  - DRUG INTERACTION [None]
  - DRUG LEVEL BELOW THERAPEUTIC [None]
  - NEUROPATHY PERIPHERAL [None]
  - SINUSITIS [None]
